FAERS Safety Report 16551194 (Version 1)
Quarter: 2019Q3

REPORT INFORMATION
  Report Type: Spontaneous
  Country: US (occurrence: US)
  Receive Date: 20190710
  Receipt Date: 20190710
  Transmission Date: 20191004
  Serious: No
  Sender: FDA-Public Use
  Company Number: US-TEVA-2019-US-1069150

PATIENT
  Age: 67 Year
  Sex: Female

DRUGS (2)
  1. CLONAZEPAM. [Suspect]
     Active Substance: CLONAZEPAM
     Indication: ANXIETY
     Route: 065
  2. CLONAZEPAM. [Suspect]
     Active Substance: CLONAZEPAM
     Dosage: REDUCING HER DOSE BY 0.25 MG ONCE A MONTH
     Route: 065

REACTIONS (5)
  - Product substitution issue [Unknown]
  - Anxiety [Unknown]
  - Insomnia [Unknown]
  - Palpitations [Unknown]
  - Wrong technique in product usage process [Unknown]
